FAERS Safety Report 8913447 (Version 2)
Quarter: 2013Q1

REPORT INFORMATION
  Report Type: Report from Study
  Country: CA (occurrence: CA)
  Receive Date: 20121119
  Receipt Date: 20130322
  Transmission Date: 20140127
  Serious: Yes (Other)
  Sender: FDA-Public Use
  Company Number: CA-JNJFOC-20121104883

PATIENT
  Sex: Female
  Weight: 71 kg

DRUGS (4)
  1. REMICADE [Suspect]
     Indication: CROHN^S DISEASE
     Route: 042
     Dates: start: 20090101
  2. REMICADE [Suspect]
     Indication: CROHN^S DISEASE
     Route: 042
     Dates: start: 201212
  3. REMICADE [Suspect]
     Indication: CROHN^S DISEASE
     Route: 042
     Dates: start: 200707
  4. LYRICA [Concomitant]
     Dosage: TAPERED SINCE END OF SEP-2012
     Route: 065
     Dates: end: 20121106

REACTIONS (5)
  - Crohn^s disease [Unknown]
  - Vaginal fistula [Unknown]
  - Haemorrhage [Unknown]
  - Drug ineffective [Unknown]
  - Arthralgia [Unknown]
